FAERS Safety Report 9173404 (Version 1)
Quarter: 2013Q1

REPORT INFORMATION
  Report Type: Spontaneous
  Country: GB (occurrence: None)
  Receive Date: 20130315
  Receipt Date: 20130315
  Transmission Date: 20140127
  Serious: Yes (Disabling, Congenital Anomaly)
  Sender: FDA-Public Use
  Company Number: 2013-03935

PATIENT
  Age: 51 Year
  Sex: Female

DRUGS (4)
  1. LETROZOLE [Suspect]
     Indication: PRODUCT USED FOR UNKNOWN INDICATION
     Route: 048
     Dates: start: 20121212
  2. HERCEPTIN (TRASTUZUMAB) [Suspect]
     Indication: HER-2 POSITIVE BREAST CANCER
     Dosage: 1 PER WEEKS, INTRAVENOUS
     Route: 042
     Dates: start: 20121217
  3. CHLORPHENIRAMINE /00072501/ (CHLORPHENAMINE) [Concomitant]
  4. PREDNISONE (PREDNISONE) [Concomitant]

REACTIONS (1)
  - Arthralgia [None]
